FAERS Safety Report 6970870-1 (Version None)
Quarter: 2010Q3

REPORT INFORMATION
  Report Type: 
  Country: None (occurrence: None)
  Receive Date: 20100908
  Receipt Date: 20100830
  Transmission Date: 20110219
  Serious: Yes (Hospitalization)
  Sender: FDA-Public Use
  Company Number: B0672142A

PATIENT
  Sex: Female

DRUGS (10)
  1. AMOXICILLIN [Suspect]
     Indication: PROPHYLAXIS
     Dosage: 1G TWICE PER DAY
     Route: 048
     Dates: start: 20100720, end: 20100722
  2. PREVISCAN [Suspect]
     Indication: ATRIAL FIBRILLATION
     Dosage: 20MG PER DAY
     Route: 048
  3. LEVOTHYROXINE SODIUM [Concomitant]
     Dosage: 37.5MCG PER DAY
     Route: 048
  4. PIRACETAM [Concomitant]
     Dosage: 800MG THREE TIMES PER DAY
     Route: 048
  5. TRIATEC [Concomitant]
     Dosage: 1.25MG PER DAY
     Route: 048
  6. HEMIGOXINE [Concomitant]
     Indication: ATRIAL FIBRILLATION
     Dosage: .125MG FOUR TIMES PER WEEK
     Route: 048
  7. LASIX [Concomitant]
     Dosage: 40MG PER DAY
     Route: 048
     Dates: end: 20100802
  8. BISOPROLOL FUMARATE [Concomitant]
     Dosage: 10MG PER DAY
     Route: 048
  9. LASIX [Concomitant]
     Dosage: 20MG TWICE PER DAY
     Route: 048
  10. TAHOR [Concomitant]
     Dosage: 10MG PER DAY
     Route: 048

REACTIONS (6)
  - ANAEMIA [None]
  - DRUG INTERACTION [None]
  - HAEMATOMA [None]
  - HAEMORRHAGE [None]
  - INTERNATIONAL NORMALISED RATIO INCREASED [None]
  - OVERDOSE [None]
